FAERS Safety Report 6193130-8 (Version None)
Quarter: 2009Q2

REPORT INFORMATION
  Report Type: 
  Country: None (occurrence: None)
  Receive Date: 20090514
  Receipt Date: 20090514
  Transmission Date: 20091009
  Serious: Yes (Life-Threatening, Hospitalization)
  Sender: FDA-Public Use
  Company Number: None

PATIENT
  Age: 76 Year
  Sex: Female
  Weight: 113.3993 kg

DRUGS (2)
  1. RITUXAN [Suspect]
     Indication: CHRONIC LYMPHOCYTIC LEUKAEMIA
     Dosage: NOT SURE WEEKLY IV
     Route: 042
     Dates: start: 20081201, end: 20081224
  2. RITUXAN [Suspect]
     Indication: HAEMOLYTIC ANAEMIA
     Dosage: NOT SURE WEEKLY IV
     Route: 042
     Dates: start: 20081201, end: 20081224

REACTIONS (13)
  - ASTHENIA [None]
  - BLOOD ALBUMIN DECREASED [None]
  - DEHYDRATION [None]
  - DIARRHOEA [None]
  - GENITAL HERPES [None]
  - INFECTION [None]
  - MALABSORPTION [None]
  - NEUTROPENIA [None]
  - ODYNOPHAGIA [None]
  - ORAL HERPES [None]
  - PAIN [None]
  - RENAL FAILURE [None]
  - SKIN IRRITATION [None]
